FAERS Safety Report 14187013 (Version 2)
Quarter: 2018Q1

REPORT INFORMATION
  Report Type: Spontaneous
  Country: JP (occurrence: JP)
  Receive Date: 20171114
  Receipt Date: 20180320
  Transmission Date: 20180508
  Serious: Yes (Other)
  Sender: FDA-Public Use
  Company Number: JP-PFIZER INC-2017482828

PATIENT
  Age: 7 Decade
  Sex: Male

DRUGS (2)
  1. PACLITAXEL 100MG/16.7ML HOSPIRA [Suspect]
     Active Substance: PACLITAXEL
     Indication: GASTRIC CANCER
     Dosage: UNK
     Route: 041
  2. HERCEPTIN [Concomitant]
     Active Substance: TRASTUZUMAB
     Indication: GASTRIC CANCER
     Dosage: UNK

REACTIONS (2)
  - Tumour haemorrhage [Unknown]
  - Haemoglobin decreased [Unknown]
